FAERS Safety Report 16145914 (Version 3)
Quarter: 2019Q2

REPORT INFORMATION
  Report Type: Spontaneous
  Country: GB (occurrence: GB)
  Receive Date: 20190402
  Receipt Date: 20190621
  Transmission Date: 20190711
  Serious: Yes (Other)
  Sender: FDA-Public Use
  Company Number: GB-BRISTOL-MYERS SQUIBB COMPANY-BMS-2019-030171

PATIENT
  Sex: Female

DRUGS (1)
  1. KENALOG [Suspect]
     Active Substance: TRIAMCINOLONE ACETONIDE
     Indication: BACK PAIN
     Dosage: UNK
     Route: 008
     Dates: start: 20190206

REACTIONS (25)
  - Tinnitus [Unknown]
  - Metrorrhagia [Unknown]
  - Flushing [Unknown]
  - Toothache [Unknown]
  - Head discomfort [Unknown]
  - Neck pain [Unknown]
  - Palpitations [Unknown]
  - Asthenia [Unknown]
  - Paralysis [Unknown]
  - Hypotension [Unknown]
  - Chest pain [Unknown]
  - Musculoskeletal pain [Unknown]
  - Fatigue [Unknown]
  - Intentional product use issue [Unknown]
  - Tremor [Unknown]
  - Photosensitivity reaction [Unknown]
  - Feeling abnormal [Unknown]
  - Dural tear [Unknown]
  - Dizziness [Unknown]
  - Heart rate increased [Unknown]
  - Nausea [Unknown]
  - Muscle twitching [Unknown]
  - Balance disorder [Unknown]
  - Skin burning sensation [Unknown]
  - Bone pain [Unknown]

NARRATIVE: CASE EVENT DATE: 20190206
